FAERS Safety Report 5659498-3 (Version None)
Quarter: 2008Q1

REPORT INFORMATION
  Report Type: 
  Country: None (occurrence: None)
  Receive Date: 20080311
  Receipt Date: 20080307
  Transmission Date: 20080703
  Serious: Yes (Death, Other)
  Sender: FDA-Public Use
  Company Number: PHBS2008DK03046

PATIENT
  Age: 60 Year
  Sex: Female
  Weight: 75 kg

DRUGS (4)
  1. CYCLOPHOSPHAMIDE [Concomitant]
     Dates: start: 20050531, end: 20060424
  2. EPIRUBICIN [Concomitant]
     Dates: start: 20050531, end: 20060424
  3. FLUOROURACIL [Concomitant]
     Dates: start: 20050531, end: 20060424
  4. ZOMETA [Suspect]
     Indication: METASTASES TO BONE
     Dosage: 4 MG EVERY THIRD WEEK
     Route: 042
     Dates: start: 20050531, end: 20060424

REACTIONS (3)
  - DISEASE PROGRESSION [None]
  - OSTEONECROSIS [None]
  - TOOTH EXTRACTION [None]
